FAERS Safety Report 10192554 (Version 1)
Quarter: 2014Q2

REPORT INFORMATION
  Report Type: Spontaneous
  Country: US (occurrence: US)
  Receive Date: 20140523
  Receipt Date: 20140523
  Transmission Date: 20141212
  Serious: Yes (Death)
  Sender: FDA-Public Use
  Company Number: US-ASTELLAS-2014US005641

PATIENT
  Age: 63 Year
  Sex: Male

DRUGS (3)
  1. XTANDI [Suspect]
     Indication: PROSTATE CANCER
     Route: 048
     Dates: start: 20130514
  2. XTANDI [Suspect]
     Indication: RENAL CANCER
  3. XTANDI [Suspect]
     Indication: ILL-DEFINED DISORDER

REACTIONS (2)
  - Death [Fatal]
  - Off label use [Unknown]
